FAERS Safety Report 17402406 (Version 1)
Quarter: 2020Q1

REPORT INFORMATION
  Report Type: Spontaneous
  Country: US (occurrence: US)
  Receive Date: 20200210
  Receipt Date: 20200210
  Transmission Date: 20200409
  Serious: Yes (Hospitalization)
  Sender: FDA-Public Use
  Company Number: None

PATIENT
  Age: 48 Year
  Sex: Female

DRUGS (5)
  1. NUVARING [Concomitant]
     Active Substance: ETHINYL ESTRADIOL\ETONOGESTREL
  2. HUMIRA [Suspect]
     Active Substance: ADALIMUMAB
     Indication: RHEUMATOID ARTHRITIS
     Dosage: ?          OTHER FREQUENCY:EVERY 2 WEEKS;?
     Route: 058
     Dates: start: 20190501
  3. IRBESARTAN. [Concomitant]
     Active Substance: IRBESARTAN
  4. FOLIC ACID. [Concomitant]
     Active Substance: FOLIC ACID
  5. METOPROL SUC [Concomitant]

REACTIONS (5)
  - Fatigue [None]
  - Heart rate increased [None]
  - Dyspnoea [None]
  - Nephrolithiasis [None]
  - Vomiting [None]

NARRATIVE: CASE EVENT DATE: 20200207
